FAERS Safety Report 12658643 (Version 1)
Quarter: 2016Q3

REPORT INFORMATION
  Report Type: Spontaneous
  Country: US (occurrence: US)
  Receive Date: 20160817
  Receipt Date: 20160817
  Transmission Date: 20161109
  Serious: Yes (Other)
  Sender: FDA-Public Use
  Company Number: US-SA-2016SA147127

PATIENT
  Sex: Male

DRUGS (1)
  1. GOLD BOND MEDICATED FOOT [Suspect]
     Active Substance: MENTHOL
     Indication: PROPHYLAXIS
     Dosage: FORM: POWDER
     Route: 065

REACTIONS (2)
  - Haemorrhage [Unknown]
  - Skin irritation [Unknown]
